FAERS Safety Report 4497344-4 (Version None)
Quarter: 2004Q4

REPORT INFORMATION
  Report Type: 
  Country: None (occurrence: None)
  Receive Date: 20041110
  Receipt Date: 20030501
  Transmission Date: 20050328
  Serious: Yes (Hospitalization, Other)
  Sender: FDA-Public Use
  Company Number: US-BRISTOL-MYERS SQUIBB COMPANY-12271367

PATIENT
  Age: 29 Year
  Sex: Male

DRUGS (1)
  1. STADOL [Suspect]
     Indication: MIGRAINE
     Dates: start: 19930101, end: 19950101

REACTIONS (3)
  - DEPENDENCE [None]
  - DRUG DEPENDENCE [None]
  - RECTAL HAEMORRHAGE [None]
